FAERS Safety Report 4715864-1 (Version None)
Quarter: 2005Q3

REPORT INFORMATION
  Report Type: 
  Country: None (occurrence: None)
  Receive Date: 20050718
  Receipt Date: 20050405
  Transmission Date: 20060218
  Serious: Yes (Other)
  Sender: FDA-Public Use
  Company Number: US-ROCHE-401074

PATIENT
  Age: 26 Year
  Sex: Female
  Weight: 93 kg

DRUGS (10)
  1. ACCUTANE [Suspect]
     Route: 065
     Dates: start: 20030822, end: 20031215
  2. ISOTRETINOIN [Suspect]
     Route: 065
     Dates: start: 20040115, end: 20040215
  3. ORAL CONTRACEPTIVE PILL [Concomitant]
     Indication: CONTRACEPTION
  4. ORTHO TRI-CYCLEN [Concomitant]
  5. ZOLOFT [Concomitant]
  6. NEXIUM [Concomitant]
  7. ALBUTEROL SULFATE [Concomitant]
  8. NEURONTIN [Concomitant]
  9. ANUSOL-HC SUPPOSITORY [Concomitant]
  10. NASONEX [Concomitant]

REACTIONS (2)
  - DRUG EXPOSURE DURING PREGNANCY [None]
  - ECTOPIC PREGNANCY [None]
